FAERS Safety Report 21595230 (Version 1)
Quarter: 2022Q4

REPORT INFORMATION
  Report Type: Report from Study
  Country: US (occurrence: US)
  Receive Date: 20221115
  Receipt Date: 20221115
  Transmission Date: 20230112
  Serious: No
  Sender: FDA-Public Use
  Company Number: US-ABBVIE-22K-163-4470923-00

PATIENT
  Age: 68 Year
  Sex: Female

DRUGS (10)
  1. HUMIRA [Suspect]
     Active Substance: ADALIMUMAB
     Indication: Rheumatoid arthritis
     Route: 058
  2. HUMIRA [Suspect]
     Active Substance: ADALIMUMAB
     Route: 058
  3. PFIZER-BIONTECH COVID-19 VACCINE [Concomitant]
     Active Substance: TOZINAMERAN
     Indication: COVID-19 immunisation
     Dosage: TIME INTERVAL: 1 TOTAL: 1ST DOSE
     Route: 030
     Dates: start: 20210315, end: 20210315
  4. PFIZER-BIONTECH COVID-19 VACCINE [Concomitant]
     Active Substance: TOZINAMERAN
     Indication: COVID-19 immunisation
     Dosage: TIME INTERVAL: 1 TOTAL: 2ND DOSE
     Route: 030
     Dates: start: 20210415, end: 20210415
  5. PFIZER-BIONTECH COVID-19 VACCINE [Concomitant]
     Active Substance: TOZINAMERAN
     Indication: COVID-19 immunisation
     Dosage: TIME INTERVAL: 1 TOTAL: 3RD DOSE
     Route: 030
     Dates: start: 20211215, end: 20211215
  6. OMEGA-3 FATTY ACIDS [Concomitant]
     Active Substance: OMEGA-3 FATTY ACIDS
     Indication: Supplementation therapy
  7. GLUCOSAMINE [Concomitant]
     Active Substance: GLUCOSAMINE
     Indication: Supplementation therapy
     Dosage: TIME INTERVAL: 0.33333333 DAYS: 3 CAPSULES PER DAY
  8. CALCIGEN D3 [Concomitant]
     Indication: Supplementation therapy
  9. 5000 IU Vitamin d3 [Concomitant]
     Indication: Supplementation therapy
  10. TYLENOL [Concomitant]
     Active Substance: ACETAMINOPHEN
     Indication: Product used for unknown indication
     Dosage: TIME INTERVAL: AS NECESSARY: 2 TABLETS EVERY 8 HRS AS NEEDED
     Route: 048

REACTIONS (1)
  - Blood test abnormal [Recovering/Resolving]

NARRATIVE: CASE EVENT DATE: 20220425
